FAERS Safety Report 20461303 (Version 4)
Quarter: 2022Q1

REPORT INFORMATION
  Report Type: Report from Study
  Country: PL (occurrence: PL)
  Receive Date: 20220211
  Receipt Date: 20220323
  Transmission Date: 20220423
  Serious: Yes (Hospitalization, Other)
  Sender: FDA-Public Use
  Company Number: PL-JNJFOC-20220207816

PATIENT
  Age: 52 Year
  Sex: Male
  Weight: 90 kg

DRUGS (17)
  1. PONESIMOD [Suspect]
     Active Substance: PONESIMOD
     Indication: Relapsing multiple sclerosis
     Dosage: MED KIT NUMBER 161968
     Route: 048
     Dates: start: 20180810, end: 20220201
  2. TEGRETOL XR [Concomitant]
     Active Substance: CARBAMAZEPINE
     Indication: Depression
     Route: 048
     Dates: start: 20200602
  3. TEGRETOL XR [Concomitant]
     Active Substance: CARBAMAZEPINE
     Indication: Bipolar disorder
  4. DUTILOX [Concomitant]
     Indication: Depression
     Dates: start: 20201115
  5. DUTILOX [Concomitant]
     Indication: Bipolar disorder
  6. ARIPIPRAZOLE [Concomitant]
     Active Substance: ARIPIPRAZOLE
     Indication: Depression
     Route: 048
     Dates: start: 20201115
  7. ARIPIPRAZOLE [Concomitant]
     Active Substance: ARIPIPRAZOLE
     Indication: Bipolar disorder
  8. PREGABALIN [Concomitant]
     Active Substance: PREGABALIN
     Indication: Depression
     Route: 048
     Dates: start: 20191101
  9. PREGABALIN [Concomitant]
     Active Substance: PREGABALIN
     Indication: Bipolar disorder
  10. LAMOTRIGINE [Concomitant]
     Active Substance: LAMOTRIGINE
     Indication: Depression
     Route: 048
  11. PAROXINOR [Concomitant]
     Indication: Depression
     Route: 048
     Dates: start: 20181011, end: 20200115
  12. PAROXINOR [Concomitant]
     Route: 048
     Dates: start: 20181011
  13. DITROPAN [Concomitant]
     Active Substance: OXYBUTYNIN CHLORIDE
     Indication: Bladder dysfunction
     Route: 048
  14. FENOFIBRATE [Concomitant]
     Active Substance: FENOFIBRATE
     Indication: Hypertriglyceridaemia
     Route: 048
  15. METFORMIN HYDROCHLORIDE [Concomitant]
     Active Substance: METFORMIN HYDROCHLORIDE
     Indication: Insulin resistance
     Route: 048
  16. CHOLECALCIFEROL [Concomitant]
     Active Substance: CHOLECALCIFEROL
     Indication: Vitamin D deficiency
     Route: 048
  17. BACLOFEN [Concomitant]
     Active Substance: BACLOFEN
     Indication: Muscle spasticity
     Route: 048

REACTIONS (1)
  - Papillary renal cell carcinoma [Recovered/Resolved with Sequelae]

NARRATIVE: CASE EVENT DATE: 20211201
